FAERS Safety Report 20494390 (Version 1)
Quarter: 2022Q1

REPORT INFORMATION
  Report Type: Spontaneous
  Country: JP (occurrence: JP)
  Receive Date: 20220221
  Receipt Date: 20220221
  Transmission Date: 20220423
  Serious: Yes (Hospitalization, Other)
  Sender: FDA-Public Use
  Company Number: JP-SUN PHARMACEUTICAL INDUSTRIES LTD-2022RR-327532

PATIENT
  Age: 67 Year
  Sex: Female
  Weight: 38.8 kg

DRUGS (3)
  1. GEMCITABINE [Suspect]
     Active Substance: GEMCITABINE
     Indication: Urethral cancer
     Dosage: 1000 MILLIGRAM/SQ. METER, ON DAYS 1 AND 8
     Route: 065
  2. CISPLATIN [Suspect]
     Active Substance: CISPLATIN
     Indication: Urethral cancer
     Dosage: 70 MILLIGRAM/SQ. METER, ON DAY 2
     Route: 065
  3. TS-1 [Suspect]
     Active Substance: GIMERACIL\OTERACIL\TEGAFUR
     Indication: Urethral cancer
     Dosage: 50 MILLIGRAM, UNK
     Route: 048

REACTIONS (6)
  - Angina pectoris [Unknown]
  - Thrombocytopenia [Unknown]
  - Fatigue [Unknown]
  - Diarrhoea [Unknown]
  - Neutropenia [Unknown]
  - Therapeutic product effect incomplete [Unknown]
